FAERS Safety Report 7422996-6 (Version None)
Quarter: 2011Q2

REPORT INFORMATION
  Report Type: 
  Country: None (occurrence: None)
  Receive Date: 20110411
  Receipt Date: 20110401
  Transmission Date: 20111010
  Serious: No
  Sender: FDA-Public Use
  Company Number: 2011US0082

PATIENT
  Sex: Female
  Weight: 61.9 kg

DRUGS (1)
  1. ANAKINRA (ANAKINRA) [Suspect]
     Indication: MUCKLE-WELLS SYNDROME

REACTIONS (1)
  - DRUG EXPOSURE DURING PREGNANCY [None]
